FAERS Safety Report 8936532 (Version 3)
Quarter: 2012Q4

REPORT INFORMATION
  Report Type: 
  Country: JP (occurrence: JP)
  Receive Date: 20121130
  Receipt Date: 20121226
  Transmission Date: 20130627
  Serious: Yes (Life-Threatening, Hospitalization, Other)
  Sender: FDA-Public Use
  Company Number: JP-PFIZER INC-2012297615

PATIENT
  Age: 60 Year
  Sex: Male

DRUGS (3)
  1. SEIBULE [Suspect]
     Indication: DIABETES MELLITUS
     Dosage: 50 mg, 3x/day
     Route: 048
     Dates: start: 20120928, end: 20121109
  2. TIENAM [Suspect]
     Indication: ACUTE PYELONEPHRITIS
     Dosage: 0.5 g, 2times
     Route: 042
     Dates: end: 20121114
  3. ACTOS [Concomitant]
     Indication: DIABETES MELLITUS
     Dosage: UNK
     Dates: end: 20120926

REACTIONS (7)
  - Hepatic function abnormal [Recovering/Resolving]
  - Abdominal pain upper [Recovering/Resolving]
  - Pyelonephritis acute [Recovering/Resolving]
  - Dyspnoea [Recovering/Resolving]
  - Pyrexia [Recovering/Resolving]
  - Bile duct stone [Recovering/Resolving]
  - White blood cell count increased [Recovering/Resolving]
